FAERS Safety Report 24235005 (Version 3)
Quarter: 2024Q4

REPORT INFORMATION
  Report Type: Spontaneous
  Country: US (occurrence: US)
  Receive Date: 20240821
  Receipt Date: 20241206
  Transmission Date: 20250115
  Serious: No
  Sender: NOVARTIS
  Company Number: US-002147023-NVSC2024US169420

PATIENT
  Sex: Female

DRUGS (1)
  1. COSENTYX [Suspect]
     Active Substance: SECUKINUMAB
     Indication: Product used for unknown indication
     Dosage: UNK, QMO 300MG/2ML
     Route: 065

REACTIONS (4)
  - Device leakage [Unknown]
  - Incorrect dose administered by device [Unknown]
  - Device issue [Unknown]
  - Swelling [Unknown]
